FAERS Safety Report 16399109 (Version 1)
Quarter: 2019Q2

REPORT INFORMATION
  Report Type: Spontaneous
  Country: US (occurrence: US)
  Receive Date: 20190501
  Receipt Date: 20190501
  Transmission Date: 20190711
  Serious: No
  Sender: FDA-Public Use
  Company Number: None

PATIENT
  Age: 54 Year
  Sex: Male
  Weight: 91 kg

DRUGS (1)
  1. NICOTINE POLACRILEX [Suspect]
     Active Substance: NICOTINE
     Indication: NICOTINE DEPENDENCE
     Route: 060
     Dates: start: 20181204, end: 20181214

REACTIONS (3)
  - Cough [None]
  - Anaphylactic reaction [None]
  - Wheezing [None]

NARRATIVE: CASE EVENT DATE: 20181214
